FAERS Safety Report 24209927 (Version 2)
Quarter: 2024Q4

REPORT INFORMATION
  Report Type: Spontaneous
  Country: KR (occurrence: KR)
  Receive Date: 20240814
  Receipt Date: 20241008
  Transmission Date: 20250115
  Serious: Yes (Other)
  Sender: ROCHE
  Company Number: KR-ROCHE-10000034532

PATIENT
  Age: 70 Year
  Sex: Female
  Weight: 70.1 kg

DRUGS (5)
  1. KADCYLA [Suspect]
     Active Substance: ADO-TRASTUZUMAB EMTANSINE
     Indication: Breast cancer
     Route: 065
  2. LYRICA [Suspect]
     Active Substance: PREGABALIN
     Indication: Neuralgia
     Route: 048
     Dates: start: 20240423
  3. VITIS VINIFERA ROOT [Suspect]
     Active Substance: VITIS VINIFERA ROOT
     Indication: Lymphoedema
     Route: 048
     Dates: start: 20240515
  4. LETROZOLE [Suspect]
     Active Substance: LETROZOLE
     Indication: Blood oestrogen
     Route: 048
     Dates: start: 20231218
  5. CALCIUM CARBONATE\CHOLECALCIFEROL [Suspect]
     Active Substance: CALCIUM CARBONATE\CHOLECALCIFEROL
     Indication: Vitamin D deficiency
     Route: 048
     Dates: start: 20240429

REACTIONS (2)
  - Fracture [Unknown]
  - Ankle fracture [Recovering/Resolving]

NARRATIVE: CASE EVENT DATE: 20240721
